FAERS Safety Report 5777418-8 (Version None)
Quarter: 2008Q2

REPORT INFORMATION
  Report Type: 
  Country: None (occurrence: None)
  Receive Date: 20080618
  Receipt Date: 20080616
  Transmission Date: 20081010
  Serious: Yes (Other)
  Sender: FDA-Public Use
  Company Number: DE-RB-001722-08

PATIENT
  Age: 77 Year
  Sex: Female

DRUGS (6)
  1. TEMGESIC [Suspect]
     Indication: INTERVERTEBRAL DISC INJURY
     Dosage: 0.2 MG EVERY 10 TO 12 HOURS
     Route: 060
     Dates: start: 20080510, end: 20080524
  2. NOVAMINSULFON [Concomitant]
     Indication: DRUG USE FOR UNKNOWN INDICATION
     Dosage: UNKNOWN DOSING INFORMATION.
  3. NITROLINGUAL [Concomitant]
     Indication: DRUG USE FOR UNKNOWN INDICATION
     Dosage: UNKNOWN DOSING INFORMATION.
  4. ISOPTIN 80 [Concomitant]
     Indication: DRUG USE FOR UNKNOWN INDICATION
     Dosage: UNKNOWN DOSING INFORMATION.
  5. TRIAMTERENE AND HYDROCHLOROTHIAZIDE [Concomitant]
     Indication: DRUG USE FOR UNKNOWN INDICATION
     Dosage: UNKNOWN DOSING INFORMATION.
  6. PERTENSO N [Concomitant]
     Indication: DRUG USE FOR UNKNOWN INDICATION
     Dosage: UNKNOWN DOSING INFORMATION.

REACTIONS (3)
  - COAGULOPATHY [None]
  - FEELING HOT [None]
  - HYPOTENSION [None]
